FAERS Safety Report 6571986-4 (Version None)
Quarter: 2010Q1

REPORT INFORMATION
  Report Type: 
  Country: None (occurrence: None)
  Receive Date: 20100205
  Receipt Date: 20100125
  Transmission Date: 20100710
  Serious: Yes (Death, Hospitalization, Other)
  Sender: FDA-Public Use
  Company Number: US-ELI_LILLY_AND_COMPANY-US201001005497

PATIENT
  Sex: Female

DRUGS (1)
  1. ZYPREXA [Suspect]
     Dosage: 20 MG, DAILY (1/D)
     Route: 065

REACTIONS (6)
  - CARDIAC FAILURE [None]
  - DECUBITUS ULCER [None]
  - HOSPITALISATION [None]
  - HYPOTENSION [None]
  - INFECTION [None]
  - PAIN [None]
